FAERS Safety Report 25968414 (Version 1)
Quarter: 2025Q4

REPORT INFORMATION
  Report Type: Spontaneous
  Country: US (occurrence: US)
  Receive Date: 20251028
  Receipt Date: 20251028
  Transmission Date: 20260117
  Serious: No
  Sender: LEO PHARM
  Company Number: US-LEO Pharma-383714

PATIENT
  Age: 75 Year
  Sex: Female

DRUGS (1)
  1. ADBRY [Suspect]
     Active Substance: TRALOKINUMAB-LDRM
     Indication: Eczema
     Dosage: INJECT 4 SYRINGES (600MG) UNDER THE SKIN ON DAY 1 (10/17/25), THEN START MAINTENANCE DOSING AS DIREC
     Route: 058
     Dates: start: 20251017

REACTIONS (2)
  - Pruritus [Recovered/Resolved]
  - Eczema [Unknown]
